FAERS Safety Report 19715701 (Version 2)
Quarter: 2021Q3

REPORT INFORMATION
  Report Type: Spontaneous
  Country: US (occurrence: US)
  Receive Date: 20210818
  Receipt Date: 20210825
  Transmission Date: 20211014
  Serious: No
  Sender: FDA-Public Use
  Company Number: US-BAXTER-2021BAX025654

PATIENT
  Age: 86 Year
  Sex: Male

DRUGS (3)
  1. HEPARIN SODIUM IN 0.9% SODIUM CHLORIDE [Suspect]
     Active Substance: HEPARIN SODIUM\SODIUM CHLORIDE
     Dosage: BOLUS OF 4,000 UNITS, AT 20:38 HOURS
     Route: 041
     Dates: start: 20210529
  2. HEPARIN SODIUM IN 0.9% SODIUM CHLORIDE [Suspect]
     Active Substance: HEPARIN SODIUM\SODIUM CHLORIDE
     Indication: PRODUCT USED FOR UNKNOWN INDICATION
     Dosage: INFUSION RATE: 15U/K/HR
     Route: 041
     Dates: start: 20210529
  3. HEPARIN SODIUM IN 0.9% SODIUM CHLORIDE [Suspect]
     Active Substance: HEPARIN SODIUM\SODIUM CHLORIDE
     Dosage: INFUSION RATE: 17U/KG/HR
     Route: 041
     Dates: start: 20210529

REACTIONS (4)
  - Device kink [Unknown]
  - Device delivery system issue [Unknown]
  - Device alarm issue [Unknown]
  - Activated partial thromboplastin time abnormal [Unknown]

NARRATIVE: CASE EVENT DATE: 20210529
